FAERS Safety Report 5423675-7 (Version None)
Quarter: 2007Q3

REPORT INFORMATION
  Report Type: 
  Country: None (occurrence: None)
  Receive Date: 20070823
  Receipt Date: 20070711
  Transmission Date: 20080115
  Serious: Yes (Congenital Anomaly)
  Sender: FDA-Public Use
  Company Number: B0479796A

PATIENT

DRUGS (3)
  1. SAQUINAVIR [Suspect]
     Indication: HIV INFECTION
     Dates: start: 20060719
  2. RITONAVIR [Suspect]
     Indication: HIV INFECTION
     Dates: start: 20060719
  3. COMBIVIR [Suspect]
     Indication: HIV INFECTION
     Dates: start: 19990201

REACTIONS (2)
  - DRUG EXPOSURE DURING PREGNANCY [None]
  - KLINEFELTER'S SYNDROME [None]
